FAERS Safety Report 25624408 (Version 1)
Quarter: 2025Q3

REPORT INFORMATION
  Report Type: Spontaneous
  Country: CA (occurrence: CA)
  Receive Date: 20250730
  Receipt Date: 20250730
  Transmission Date: 20251021
  Serious: Yes (Other)
  Sender: NOVARTIS
  Company Number: CA-002147023-NVSC2025CA118551

PATIENT
  Sex: Female

DRUGS (1)
  1. ILARIS [Suspect]
     Active Substance: CANAKINUMAB
     Indication: Yao syndrome
     Dosage: 300 MG, QMO
     Route: 065

REACTIONS (4)
  - Yao syndrome [Unknown]
  - Disease progression [Unknown]
  - Therapeutic response shortened [Unknown]
  - Off label use [Unknown]
